FAERS Safety Report 7214613-5 (Version None)
Quarter: 2010Q4

REPORT INFORMATION
  Report Type: 
  Country: None (occurrence: None)
  Receive Date: 20101126
  Receipt Date: 20100405
  Transmission Date: 20110411
  Serious: Yes (Hospitalization)
  Sender: FDA-Public Use
  Company Number: CIP09002993

PATIENT
  Sex: Female

DRUGS (24)
  1. ACTONEL [Suspect]
     Dosage: 35 MG ONCE WEEKLY, ORAL
     Route: 048
     Dates: start: 20030207, end: 20060301
  2. FOSAMAX [Suspect]
     Dosage: ORAL
     Route: 048
     Dates: start: 20060401
  3. BONIVA [Suspect]
     Dosage: ORAL
     Route: 048
     Dates: start: 20060401, end: 20061101
  4. TRAMADOL HCL [Concomitant]
  5. PROTONIX [Concomitant]
  6. GLUCOPHAGE /00082701/ (METFORMIN) [Concomitant]
  7. CALTRATE /00108001/ (CALCIUM CARBONATE) [Concomitant]
  8. NEXIUM [Concomitant]
  9. MULTIVITAMIN /00097801/ (ASCORBIC ACID, CALCIUM PANTOTHENATE, ERGOCALC [Concomitant]
  10. GLUCOSAMINE  + CHONDROITIN (CHONDROITIN SULFATE, GLUCOSAMINE) [Concomitant]
  11. VOLTAREN /00567501/ (DICLOFENAC) [Concomitant]
  12. DEPO-MEDROL [Concomitant]
  13. SYNVISC /00567501/ (HYALURONIC ACID) [Concomitant]
  14. AVANDIA [Concomitant]
  15. VALIUM [Concomitant]
  16. ACIPHEX [Concomitant]
  17. NABUMETONE [Concomitant]
  18. MOBIC [Concomitant]
  19. EFFEXOR /01233801/ (VENLAFAXINE) [Concomitant]
  20. ALPRAZOLAM [Concomitant]
  21. METFORMIN (METFORMIN) [Concomitant]
  22. DICLOFENAC SODIUM [Concomitant]
  23. BEXTRA /01401501/ (VALDECOXIB) [Concomitant]
  24. COMBIVENT [Concomitant]

REACTIONS (17)
  - BLOODY DISCHARGE [None]
  - BONE FRAGMENTATION [None]
  - DENTAL FISTULA [None]
  - ENDODONTIC PROCEDURE [None]
  - FISTULA DISCHARGE [None]
  - IMPAIRED HEALING [None]
  - JAW DISORDER [None]
  - MOUTH ULCERATION [None]
  - OSTEOMYELITIS [None]
  - OSTEONECROSIS OF JAW [None]
  - PAIN IN JAW [None]
  - PRIMARY SEQUESTRUM [None]
  - PURULENT DISCHARGE [None]
  - RESORPTION BONE INCREASED [None]
  - TOOTH EXTRACTION [None]
  - TOOTH FRACTURE [None]
  - TOOTH REPAIR [None]
